FAERS Safety Report 4619970-1 (Version None)
Quarter: 2005Q1

REPORT INFORMATION
  Report Type: 
  Country: None (occurrence: None)
  Receive Date: 20050324
  Receipt Date: 20050316
  Transmission Date: 20050727
  Serious: Yes (Hospitalization, Other)
  Sender: FDA-Public Use
  Company Number: 2005-02-0447

PATIENT
  Age: 45 Year
  Sex: Female
  Weight: 63 kg

DRUGS (2)
  1. PEG-INTRON [Suspect]
     Indication: HEPATITIS C
     Dosage: 100 UG QW SUBCUTANEOUS
     Route: 058
     Dates: start: 20030924, end: 20040825
  2. REBETOL [Suspect]
     Indication: HEPATITIS C
     Dosage: 1000 MG QD ORAL
     Route: 048
     Dates: start: 20030924, end: 20040825

REACTIONS (10)
  - AORTIC VALVE INCOMPETENCE [None]
  - CARDIAC FAILURE CONGESTIVE [None]
  - HYPERTHYROIDISM [None]
  - MITRAL VALVE INCOMPETENCE [None]
  - NOCTURIA [None]
  - ORTHOPNOEA [None]
  - THYROIDITIS [None]
  - THYROTOXIC CRISIS [None]
  - TRANSAMINASES INCREASED [None]
  - TRICUSPID VALVE INCOMPETENCE [None]
